FAERS Safety Report 26136047 (Version 1)
Quarter: 2025Q4

REPORT INFORMATION
  Report Type: Report from Study
  Country: EU (occurrence: EU)
  Receive Date: 20251209
  Receipt Date: 20251209
  Transmission Date: 20260118
  Serious: Yes (Hospitalization)
  Sender: JOHNSON AND JOHNSON
  Company Number: EU-JNJFOC-20251209805

PATIENT
  Age: 5 Decade
  Sex: Male
  Weight: 85 kg

DRUGS (19)
  1. UPTRAVI [Suspect]
     Active Substance: SELEXIPAG
     Indication: Pulmonary arterial hypertension
     Dosage: TOTAL DAILY DOSE: 3200 UG
     Route: 048
  2. UPTRAVI [Suspect]
     Active Substance: SELEXIPAG
     Dosage: TOTAL DAILY DOSE: 2800 UG
     Route: 048
     Dates: start: 20241125, end: 20241201
  3. UPTRAVI [Suspect]
     Active Substance: SELEXIPAG
     Dosage: TOTAL DAILY DOSE: 2400 UG
     Route: 048
     Dates: start: 20241104, end: 20241124
  4. UPTRAVI [Suspect]
     Active Substance: SELEXIPAG
     Dosage: TOTAL DAILY DOSE: 2000 UG
     Route: 048
     Dates: start: 20241028, end: 20241103
  5. UPTRAVI [Suspect]
     Active Substance: SELEXIPAG
     Dosage: TOTAL DAILY DOSE: 1600 UG
     Route: 048
     Dates: start: 20241022, end: 20241027
  6. UPTRAVI [Suspect]
     Active Substance: SELEXIPAG
     Dosage: TOTAL DAILY DOSE: 1200 UG
     Route: 048
  7. UPTRAVI [Suspect]
     Active Substance: SELEXIPAG
     Dosage: TOTAL DAILY DOSE: 400 UG
     Route: 048
     Dates: start: 20240923, end: 20240929
  8. UPTRAVI [Suspect]
     Active Substance: SELEXIPAG
     Dosage: TOTAL DAILY DOSE: 800 UG
     Route: 048
     Dates: start: 20240930, end: 20241009
  9. MACITENTAN\TADALAFIL [Suspect]
     Active Substance: MACITENTAN\TADALAFIL
     Indication: Pulmonary arterial hypertension
     Dosage: TOTAL DAILY DOSE: 10/40
     Route: 048
  10. OPSUMIT [Concomitant]
     Active Substance: MACITENTAN
     Indication: Pulmonary arterial hypertension
     Dosage: TOTAL DAILY DOSE: 10TA
     Route: 048
  11. ADCIRCA [Concomitant]
     Active Substance: TADALAFIL
     Indication: Pulmonary arterial hypertension
     Dosage: TOTAL DAILY DOSE: 40
     Route: 048
  12. WINREVAIR [Concomitant]
     Active Substance: SOTATERCEPT-CSRK
     Indication: Pulmonary arterial hypertension
     Dosage: TOTAL DAILY DOSE: 0.5
     Route: 058
     Dates: start: 20250121, end: 20250210
  13. WINREVAIR [Concomitant]
     Active Substance: SOTATERCEPT-CSRK
     Dosage: TOTAL DAILY DOSE: 1.2
     Route: 058
  14. NICORETTE [Concomitant]
     Active Substance: NICOTINE
     Indication: Smoking cessation therapy
     Route: 061
  15. CLOZAPINE [Concomitant]
     Active Substance: CLOZAPINE
     Indication: Schizophrenia
     Route: 048
  16. RAMIPRIL [Concomitant]
     Active Substance: RAMIPRIL
     Indication: Hypertension
     Route: 048
  17. SITAGLIPTIN [Concomitant]
     Active Substance: SITAGLIPTIN
     Indication: Diabetes mellitus
     Route: 048
  18. METFORMIN [Concomitant]
     Active Substance: METFORMIN HYDROCHLORIDE
     Indication: Diabetes mellitus
     Route: 048
  19. PANTOZOL [Concomitant]
     Active Substance: PANTOPRAZOLE SODIUM
     Indication: Gastrointestinal disorder therapy
     Route: 048

REACTIONS (1)
  - Pericardial effusion [Not Recovered/Not Resolved]

NARRATIVE: CASE EVENT DATE: 20251203
